FAERS Safety Report 13536404 (Version 1)
Quarter: 2017Q2

REPORT INFORMATION
  Report Type: Spontaneous
  Country: US (occurrence: US)
  Receive Date: 20170511
  Receipt Date: 20170511
  Transmission Date: 20170830
  Serious: No
  Sender: FDA-Public Use
  Company Number: US-GALDERMA-US17000771

PATIENT
  Age: 14 Year
  Sex: Male

DRUGS (2)
  1. UNKNOWN CLEANSER [Concomitant]
     Indication: THERAPEUTIC SKIN CARE TOPICAL
     Route: 061
  2. EPIDUO FORTE [Suspect]
     Active Substance: ADAPALENE\BENZOYL PEROXIDE
     Route: 061

REACTIONS (2)
  - Application site erythema [Unknown]
  - Application site dryness [Unknown]
